FAERS Safety Report 18564343 (Version 2)
Quarter: 2021Q2

REPORT INFORMATION
  Report Type: Other
  Country: ME (occurrence: ME)
  Receive Date: 20201201
  Receipt Date: 20210624
  Transmission Date: 20210717
  Serious: Yes (Death)
  Sender: FDA-Public Use
  Company Number: ME-ROCHE-2723307

PATIENT
  Age: 60 Year
  Sex: Male
  Weight: 100 kg

DRUGS (17)
  1. OCRELIZUMAB. [Suspect]
     Active Substance: OCRELIZUMAB
     Indication: PRIMARY PROGRESSIVE MULTIPLE SCLEROSIS
     Dosage: VISIT 2
     Route: 042
     Dates: start: 20190712, end: 20190712
  2. METHYLPREDNISOLONE. [Concomitant]
     Active Substance: METHYLPREDNISOLONE
     Indication: PREMEDICATION
     Route: 042
     Dates: start: 20190712, end: 20190712
  3. CHLOROPYRAMINE [Concomitant]
     Active Substance: CHLOROPYRAMINE
     Route: 030
     Dates: start: 20190726, end: 20190726
  4. OCRELIZUMAB. [Suspect]
     Active Substance: OCRELIZUMAB
     Dosage: VISIT 3
     Route: 042
     Dates: start: 20190726, end: 20190726
  5. OCRELIZUMAB. [Suspect]
     Active Substance: OCRELIZUMAB
     Dosage: VISIT 4
     Route: 042
     Dates: start: 20191225, end: 20191225
  6. PARACETAMOL [Concomitant]
     Active Substance: ACETAMINOPHEN
     Indication: PREMEDICATION
     Route: 048
     Dates: start: 20190712, end: 20190712
  7. PARACETAMOL [Concomitant]
     Active Substance: ACETAMINOPHEN
     Route: 048
     Dates: start: 20191225, end: 20191225
  8. PARACETAMOL [Concomitant]
     Active Substance: ACETAMINOPHEN
     Route: 048
     Dates: start: 20190726, end: 20190726
  9. METHYLPREDNISOLONE. [Concomitant]
     Active Substance: METHYLPREDNISOLONE
     Route: 042
     Dates: start: 20191225, end: 20191225
  10. CHLOROPYRAMINE [Concomitant]
     Active Substance: CHLOROPYRAMINE
     Route: 030
     Dates: start: 20191225, end: 20191225
  11. METHYLPREDNISOLONE. [Concomitant]
     Active Substance: METHYLPREDNISOLONE
     Route: 042
     Dates: start: 20200612, end: 20200612
  12. CHLOROPYRAMINE [Concomitant]
     Active Substance: CHLOROPYRAMINE
     Indication: PREMEDICATION
     Route: 030
     Dates: start: 20190712, end: 20190712
  13. OCRELIZUMAB. [Suspect]
     Active Substance: OCRELIZUMAB
     Dosage: VISIT 5
     Route: 042
     Dates: start: 20200612, end: 20200612
  14. TOLPERISONE [Concomitant]
     Active Substance: TOLPERISONE
     Route: 048
     Dates: start: 20200612
  15. METHYLPREDNISOLONE. [Concomitant]
     Active Substance: METHYLPREDNISOLONE
     Route: 042
     Dates: start: 20190726, end: 20190726
  16. CHLOROPYRAMINE [Concomitant]
     Active Substance: CHLOROPYRAMINE
     Route: 030
     Dates: start: 20200612, end: 20200612
  17. PARACETAMOL [Concomitant]
     Active Substance: ACETAMINOPHEN
     Route: 048
     Dates: start: 20200612, end: 20200612

REACTIONS (1)
  - COVID-19 [Fatal]

NARRATIVE: CASE EVENT DATE: 20201111
